FAERS Safety Report 23479873 (Version 2)
Quarter: 2025Q1

REPORT INFORMATION
  Report Type: Spontaneous
  Country: US (occurrence: US)
  Receive Date: 20240205
  Receipt Date: 20250226
  Transmission Date: 20250409
  Serious: No
  Sender: UCB
  Company Number: US-UCBSA-2023040088

PATIENT
  Age: 40 Year
  Sex: Female

DRUGS (7)
  1. LEVETIRACETAM [Suspect]
     Active Substance: LEVETIRACETAM
     Indication: Generalised tonic-clonic seizure
  2. IVIGLOB EX [Concomitant]
     Active Substance: HUMAN IMMUNOGLOBULIN G
     Indication: Encephalitis autoimmune
     Route: 042
  3. LORAZEPAM [Concomitant]
     Active Substance: LORAZEPAM
     Indication: Agitation
     Route: 030
  4. LORAZEPAM [Concomitant]
     Active Substance: LORAZEPAM
     Indication: Behaviour disorder
  5. LORAZEPAM [Concomitant]
     Active Substance: LORAZEPAM
     Indication: Alcohol withdrawal syndrome
  6. ZIPRASIDONE [Concomitant]
     Active Substance: ZIPRASIDONE
     Indication: Agitation
     Route: 030
  7. RISPERIDONE [Concomitant]
     Active Substance: RISPERIDONE
     Indication: Psychotic disorder

REACTIONS (5)
  - Tachypnoea [Unknown]
  - Tachycardia [Unknown]
  - Hyperhidrosis [Unknown]
  - Muscle twitching [Unknown]
  - Drug ineffective [Unknown]
